FAERS Safety Report 16433944 (Version 1)
Quarter: 2019Q2

REPORT INFORMATION
  Report Type: Report from Study
  Country: None (occurrence: US)
  Receive Date: 20190614
  Receipt Date: 20190614
  Transmission Date: 20190711
  Serious: Yes (Other)
  Sender: FDA-Public Use
  Company Number: US-ABBVIE-19K-163-2814895-00

PATIENT

DRUGS (2)
  1. XELJANZ XR [Suspect]
     Active Substance: TOFACITINIB CITRATE
     Indication: RHEUMATOID ARTHRITIS
     Route: 048
     Dates: start: 201904
  2. HUMIRA [Suspect]
     Active Substance: ADALIMUMAB
     Indication: PRODUCT USED FOR UNKNOWN INDICATION
     Route: 058
     Dates: start: 2015, end: 2016

REACTIONS (6)
  - Acute kidney injury [Unknown]
  - Nasal congestion [Recovered/Resolved]
  - Hypothyroidism [Unknown]
  - Pneumonia [Unknown]
  - Glomerulonephritis membranoproliferative [Unknown]
  - Nephropathy [Unknown]

NARRATIVE: CASE EVENT DATE: 201904
